FAERS Safety Report 25044030 (Version 1)
Quarter: 2025Q1

REPORT INFORMATION
  Report Type: Spontaneous
  Country: GB (occurrence: GB)
  Receive Date: 20250306
  Receipt Date: 20250306
  Transmission Date: 20250408
  Serious: Yes (Other)
  Sender: DEXCEL
  Company Number: None

PATIENT
  Age: 91 Year
  Sex: Female

DRUGS (9)
  1. ApixabanAPIXABAN (Specific Substance SUB10017) [Concomitant]
     Route: 048
  2. BISOPROLOL [Concomitant]
     Active Substance: BISOPROLOL
     Route: 048
  3. DigoxinDIGOXIN (Specific Substance SUB4897) [Concomitant]
     Dosage: EACH MORNING
     Route: 048
  4. OMEPRAZOLE [Suspect]
     Active Substance: OMEPRAZOLE
     Indication: Duodenal ulcer
     Route: 048
  5. TamsulosinTAMSULOSIN (Specific Substance SUB7202) [Concomitant]
     Dosage: AT NIGHT
     Route: 048
  6. RanolazineRANOLAZINE (Specific Substance SUB7712) [Concomitant]
     Route: 048
  7. FUROSEMIDE [Concomitant]
     Active Substance: FUROSEMIDE
     Route: 048
  8. SimvastatinSIMVASTATIN (Specific Substance SUB709) [Concomitant]
     Dosage: AT NIGHT
     Route: 048
  9. Isosorbide mononitrateISOSORBIDE MONONITRATE (Specific Substance Va... [Concomitant]
     Dosage: EACH MORNING
     Route: 048

REACTIONS (1)
  - Femoral neck fracture [Unknown]
